FAERS Safety Report 4885618-4 (Version None)
Quarter: 2005Q4

REPORT INFORMATION
  Report Type: 
  Country: None (occurrence: None)
  Receive Date: 20051220
  Receipt Date: 20050524
  Transmission Date: 20060501
  Serious: Yes (Other)
  Sender: FDA-Public Use
  Company Number: HQWYE001427MAY05

PATIENT
  Sex: Male

DRUGS (3)
  1. EFFEXOR XR [Suspect]
     Indication: ANXIETY DISORDER
     Dosage: ^37.5/75 MG ONCE DAILY^ , ORAL
     Route: 048
  2. EFFEXOR XR [Suspect]
     Indication: MAJOR DEPRESSION
     Dosage: ^37.5/75 MG ONCE DAILY^ , ORAL
     Route: 048
  3. ALCOHOL (ETHANOL) [Concomitant]

REACTIONS (1)
  - CONVULSION [None]
